FAERS Safety Report 7768027-X (Version None)
Quarter: 2011Q3

REPORT INFORMATION
  Report Type: 
  Country: None (occurrence: None)
  Receive Date: 20110922
  Receipt Date: 20110711
  Transmission Date: 20111222
  Serious: No
  Sender: FDA-Public Use
  Company Number: US-ASTRAZENECA-2011SE41390

PATIENT
  Age: 44 Year
  Sex: Female
  Weight: 111.6 kg

DRUGS (2)
  1. CYMBALTA [Concomitant]
  2. SEROQUEL [Suspect]
     Indication: BIPOLAR DISORDER
     Route: 048

REACTIONS (5)
  - INSOMNIA [None]
  - DECREASED APPETITE [None]
  - DRUG DOSE OMISSION [None]
  - ANXIETY [None]
  - DEPRESSION [None]
